FAERS Safety Report 8209266-3 (Version None)
Quarter: 2012Q1

REPORT INFORMATION
  Report Type: 
  Country: None (occurrence: None)
  Receive Date: 20120314
  Receipt Date: 20120306
  Transmission Date: 20120608
  Serious: Yes (Other)
  Sender: FDA-Public Use
  Company Number: US-BAYER-2012-021290

PATIENT
  Age: 24 Year
  Sex: Female

DRUGS (2)
  1. YASMIN [Suspect]
     Dosage: UNK
     Dates: start: 20060801, end: 20061001
  2. YAZ [Suspect]
     Dosage: UNK
     Dates: start: 20060801, end: 20061001

REACTIONS (1)
  - DEEP VEIN THROMBOSIS [None]
